FAERS Safety Report 13998984 (Version 1)
Quarter: 2017Q3

REPORT INFORMATION
  Report Type: Spontaneous
  Country: US (occurrence: US)
  Receive Date: 20170922
  Receipt Date: 20170922
  Transmission Date: 20171128
  Serious: Yes (Other)
  Sender: FDA-Public Use
  Company Number: None

PATIENT
  Age: 44 Year
  Sex: Female
  Weight: 66.15 kg

DRUGS (9)
  1. SINGULAIR [Concomitant]
     Active Substance: MONTELUKAST SODIUM
  2. CORTISONE [Suspect]
     Active Substance: CORTISONE\HYDROCORTISONE
     Indication: OSTEOARTHRITIS
     Dosage: OTHER ROUTE:INJECTED IN JOINT?
     Dates: start: 20170919
  3. PROTONIX [Concomitant]
     Active Substance: PANTOPRAZOLE SODIUM
  4. CLIDINIUM [Concomitant]
     Active Substance: CLIDINIUM
  5. CYMBALTA [Concomitant]
     Active Substance: DULOXETINE HYDROCHLORIDE
  6. CLARINEX [Concomitant]
     Active Substance: DESLORATADINE
  7. FLONASE [Concomitant]
     Active Substance: FLUTICASONE PROPIONATE
  8. XANAX [Concomitant]
     Active Substance: ALPRAZOLAM
  9. MELATONIN [Concomitant]
     Active Substance: MELATONIN

REACTIONS (2)
  - Dyspepsia [None]
  - Gastrooesophageal reflux disease [None]

NARRATIVE: CASE EVENT DATE: 20170921
